FAERS Safety Report 8564107-X (Version None)
Quarter: 2012Q3

REPORT INFORMATION
  Report Type: 
  Country: None (occurrence: None)
  Receive Date: 20120803
  Receipt Date: 20120725
  Transmission Date: 20120928
  Serious: No
  Sender: FDA-Public Use
  Company Number: US-B.I. PHARMACEUTICALS,INC./RIDGEFIELD-2012-BP-16550BP

PATIENT
  Sex: Female
  Weight: 52 kg

DRUGS (2)
  1. ATENOLOL [Concomitant]
     Indication: HYPERTENSION
     Dosage: 25 MG
     Route: 048
     Dates: start: 20110601, end: 20120701
  2. PRADAXA [Suspect]
     Indication: ATRIAL FIBRILLATION
     Dosage: 300 MG
     Route: 048
     Dates: start: 20110901

REACTIONS (5)
  - DYSPEPSIA [None]
  - NAUSEA [None]
  - BODY HEIGHT DECREASED [None]
  - GASTROINTESTINAL DISORDER [None]
  - FREQUENT BOWEL MOVEMENTS [None]
